FAERS Safety Report 12911370 (Version 1)
Quarter: 2016Q4

REPORT INFORMATION
  Report Type: Spontaneous
  Country: US (occurrence: US)
  Receive Date: 20161104
  Receipt Date: 20161104
  Transmission Date: 20170207
  Serious: Yes (Death, Hospitalization)
  Sender: FDA-Public Use
  Company Number: US-JNJFOC-20161023451

PATIENT
  Age: 37 Year
  Sex: Female

DRUGS (1)
  1. XARELTO [Suspect]
     Active Substance: RIVAROXABAN
     Indication: THROMBOSIS PROPHYLAXIS
     Dosage: 15MG + 20MG
     Route: 048
     Dates: start: 201402, end: 201407

REACTIONS (1)
  - Tracheal haemorrhage [Fatal]

NARRATIVE: CASE EVENT DATE: 20140709
